FAERS Safety Report 5887256-3 (Version None)
Quarter: 2008Q3

REPORT INFORMATION
  Report Type: 
  Country: None (occurrence: None)
  Receive Date: 20080915
  Receipt Date: 20080902
  Transmission Date: 20090109
  Serious: Yes (Hospitalization, Other)
  Sender: FDA-Public Use
  Company Number: 2008BI012171

PATIENT
  Age: 40 Year
  Sex: Male

DRUGS (1)
  1. TYSABRI [Suspect]
     Indication: MULTIPLE SCLEROSIS
     Dosage: 300 MG;QM;IV
     Route: 042
     Dates: start: 20070711

REACTIONS (11)
  - CATHETER RELATED COMPLICATION [None]
  - DEEP VEIN THROMBOSIS [None]
  - DISEASE RECURRENCE [None]
  - FOOT DEFORMITY [None]
  - HIP FRACTURE [None]
  - INFECTION [None]
  - INFUSION RELATED REACTION [None]
  - PYREXIA [None]
  - THROMBOSIS [None]
  - TREMOR [None]
  - URINARY TRACT INFECTION [None]
